FAERS Safety Report 23140930 (Version 4)
Quarter: 2025Q2

REPORT INFORMATION
  Report Type: Spontaneous
  Country: PR (occurrence: US)
  Receive Date: 20231103
  Receipt Date: 20250516
  Transmission Date: 20250716
  Serious: No
  Sender: JOHNSON AND JOHNSON
  Company Number: PR-VIIV HEALTHCARE LIMITED-US2023AMR149930

PATIENT
  Age: 66 Year
  Sex: Female

DRUGS (16)
  1. RILPIVIRINE [Suspect]
     Active Substance: RILPIVIRINE
     Indication: HIV infection
     Dosage: UNK UNK, Q2M 600 MG/900 MG INJECTION 3 ML VIAL (ONE INTRAMUSCULAR INJECTION IN EACH GLUTEUS)
     Route: 030
     Dates: start: 20220711
  2. CABOTEGRAVIR [Suspect]
     Active Substance: CABOTEGRAVIR
     Indication: HIV infection
     Dosage: UNK UNK, Q2M 600 MG/900 MG INJECTION 3 ML VIAL (ONE INTRAMUSCULAR INJECTION IN EACH GLUTEUS)
     Route: 030
     Dates: start: 20220711
  3. TRADJENTA [Concomitant]
     Active Substance: LINAGLIPTIN
     Indication: Product used for unknown indication
  4. TRADJENTA [Concomitant]
     Active Substance: LINAGLIPTIN
     Route: 065
  5. ROSUVASTATIN CALCIUM [Concomitant]
     Active Substance: ROSUVASTATIN CALCIUM
     Indication: Product used for unknown indication
  6. ROSUVASTATIN CALCIUM [Concomitant]
     Active Substance: ROSUVASTATIN CALCIUM
     Route: 065
  7. CYANOCOBALAMIN [Concomitant]
     Active Substance: CYANOCOBALAMIN
     Indication: Product used for unknown indication
  8. CYANOCOBALAMIN [Concomitant]
     Active Substance: CYANOCOBALAMIN
     Route: 065
  9. FARXIGA [Concomitant]
     Active Substance: DAPAGLIFLOZIN PROPANEDIOL
     Indication: Product used for unknown indication
  10. FARXIGA [Concomitant]
     Active Substance: DAPAGLIFLOZIN PROPANEDIOL
     Route: 065
  11. GABAPENTIN [Concomitant]
     Active Substance: GABAPENTIN
     Indication: Product used for unknown indication
  12. GABAPENTIN [Concomitant]
     Active Substance: GABAPENTIN
     Route: 065
  13. LEVOTHYROXINE [Concomitant]
     Active Substance: LEVOTHYROXINE
     Indication: Product used for unknown indication
  14. DULOXETINE [Concomitant]
     Active Substance: DULOXETINE
     Indication: Product used for unknown indication
  15. NABUMETONE [Concomitant]
     Active Substance: NABUMETONE
     Indication: Product used for unknown indication
  16. CLONAZEPAM [Concomitant]
     Active Substance: CLONAZEPAM
     Indication: Product used for unknown indication

REACTIONS (19)
  - Injection site swelling [Recovered/Resolved]
  - Vomiting [Not Recovered/Not Resolved]
  - Mycoplasma infection [Recovering/Resolving]
  - Muscle spasms [Not Recovered/Not Resolved]
  - Hypotension [Not Recovered/Not Resolved]
  - Influenza like illness [Recovered/Resolved]
  - Vomiting [Not Recovered/Not Resolved]
  - Urinary tract infection [Not Recovered/Not Resolved]
  - Diarrhoea [Not Recovered/Not Resolved]
  - Hypotension [Not Recovered/Not Resolved]
  - Rash pruritic [Not Recovered/Not Resolved]
  - Burning sensation [Unknown]
  - Somnolence [Not Recovered/Not Resolved]
  - Loss of personal independence in daily activities [Unknown]
  - Pyrexia [Not Recovered/Not Resolved]
  - Oropharyngeal pain [Unknown]
  - Headache [Recovered/Resolved]
  - Urinary tract infection [Unknown]
  - Headache [Recovered/Resolved]

NARRATIVE: CASE EVENT DATE: 20240201
